FAERS Safety Report 8975865 (Version 2)
Quarter: 2013Q1

REPORT INFORMATION
  Report Type: Spontaneous
  Country: US (occurrence: US)
  Receive Date: 20121219
  Receipt Date: 20130221
  Transmission Date: 20140127
  Serious: Yes (Other)
  Sender: FDA-Public Use
  Company Number: US-GLAXOSMITHKLINE-A1000134A

PATIENT
  Age: 66 Year
  Sex: Female

DRUGS (5)
  1. TYKERB [Suspect]
     Indication: BREAST CANCER
     Dosage: 1250MG PER DAY
     Route: 048
     Dates: start: 20121023
  2. POTASSIUM [Suspect]
     Indication: BLOOD POTASSIUM DECREASED
     Dosage: 1TAB TWICE PER DAY
     Route: 048
     Dates: start: 20121127
  3. XELODA [Suspect]
     Indication: PRODUCT USED FOR UNKNOWN INDICATION
  4. AVELOX [Concomitant]
  5. OTHER MEDICATIONS [Concomitant]

REACTIONS (13)
  - Choking [Not Recovered/Not Resolved]
  - Retching [Not Recovered/Not Resolved]
  - Vomiting [Not Recovered/Not Resolved]
  - Erythema [Not Recovered/Not Resolved]
  - Burning sensation [Not Recovered/Not Resolved]
  - Secretion discharge [Not Recovered/Not Resolved]
  - Blood potassium decreased [Not Recovered/Not Resolved]
  - Nausea [Not Recovered/Not Resolved]
  - Eating disorder [Not Recovered/Not Resolved]
  - Dysphagia [Not Recovered/Not Resolved]
  - Diarrhoea [Not Recovered/Not Resolved]
  - Local swelling [Unknown]
  - Joint swelling [Unknown]
